FAERS Safety Report 23295648 (Version 1)
Quarter: 2023Q4

REPORT INFORMATION
  Report Type: Report from Study
  Country: GB (occurrence: GB)
  Receive Date: 20231214
  Receipt Date: 20231214
  Transmission Date: 20240109
  Serious: Yes (Other)
  Sender: FDA-Public Use
  Company Number: GB-002147023-NVSC2023GB178066

PATIENT
  Sex: Female

DRUGS (3)
  1. KESIMPTA [Suspect]
     Active Substance: OFATUMUMAB
     Indication: Relapsing-remitting multiple sclerosis
     Dosage: 20 MG (STARTING DOSES: ONCE A WEEK FOR 3 WEEKS THEN SKIP A WEEK AND THEN HAVE ONE MORE DOSE THE WEEK
     Route: 058
     Dates: start: 20230804
  2. KESIMPTA [Suspect]
     Active Substance: OFATUMUMAB
     Dosage: 20 MG, OTHER (STARTING DOSES: ONCE A WEEK, MAINTENANCE DOSES: ONCE A MONTH)
     Route: 058
     Dates: start: 20230901
  3. KESIMPTA [Suspect]
     Active Substance: OFATUMUMAB
     Dosage: 20 MG, QMO
     Route: 058
     Dates: start: 20231201

REACTIONS (12)
  - Lymphocyte count decreased [Unknown]
  - Emotional distress [Not Recovered/Not Resolved]
  - Renal pain [Not Recovered/Not Resolved]
  - Pain in extremity [Recovered/Resolved]
  - Headache [Recovered/Resolved]
  - Pyrexia [Recovered/Resolved]
  - Influenza like illness [Recovered/Resolved]
  - Muscular weakness [Unknown]
  - Fatigue [Not Recovered/Not Resolved]
  - Back pain [Not Recovered/Not Resolved]
  - Injection site bruising [Not Recovered/Not Resolved]
  - Headache [Not Recovered/Not Resolved]
